FAERS Safety Report 17971258 (Version 2)
Quarter: 2020Q3

REPORT INFORMATION
  Report Type: Spontaneous
  Country: FR (occurrence: FR)
  Receive Date: 20200701
  Receipt Date: 20200703
  Transmission Date: 20201103
  Serious: Yes (Hospitalization, Other)
  Sender: FDA-Public Use
  Company Number: FR-BRISTOL-MYERS SQUIBB COMPANY-BMS-2020-049603

PATIENT
  Age: 75 Year
  Sex: Female

DRUGS (2)
  1. JAKAVI [Suspect]
     Active Substance: RUXOLITINIB
     Indication: MYELOFIBROSIS
     Dosage: 50 MILLIGRAM, DAILY
     Route: 048
     Dates: start: 20160603
  2. HYDREA [Suspect]
     Active Substance: HYDROXYUREA
     Indication: MYELOFIBROSIS
     Dosage: 500 MG EVERY 2 DAYS ^(500 MG 1J/2 ? 1000 MG 1J/2)^
     Route: 048
     Dates: start: 20181102

REACTIONS (3)
  - Pachymeningitis [Recovered/Resolved]
  - Metastases to meninges [Recovered/Resolved]
  - Tuberculosis of central nervous system [Not Recovered/Not Resolved]

NARRATIVE: CASE EVENT DATE: 20200501
